FAERS Safety Report 10061386 (Version 1)
Quarter: 2014Q2

REPORT INFORMATION
  Report Type: Spontaneous
  Country: IT (occurrence: IT)
  Receive Date: 20140407
  Receipt Date: 20140407
  Transmission Date: 20141212
  Serious: Yes (Hospitalization)
  Sender: FDA-Public Use
  Company Number: IT-SUN PHARMACEUTICAL INDUSTRIES LTD-2014SUN00730

PATIENT
  Age: 74 Year
  Sex: Male

DRUGS (4)
  1. GEMCITABINE SUN 200 MG POWDER FOR SOLUTION FOR INFUSION [Suspect]
     Indication: T-CELL LYMPHOMA
     Route: 065
  2. GEMCITABINE SUN 200 MG POWDER FOR SOLUTION FOR INFUSION [Suspect]
     Indication: T-LYMPHOCYTE COUNT INCREASED
  3. OXALIPLATIN [Suspect]
     Indication: T-CELL LYMPHOMA
     Route: 065
  4. OXALIPLATIN [Suspect]
     Indication: T-LYMPHOCYTE COUNT INCREASED

REACTIONS (2)
  - Toxicity to various agents [Unknown]
  - Haematotoxicity [Unknown]
